FAERS Safety Report 6088069-2 (Version None)
Quarter: 2009Q1

REPORT INFORMATION
  Report Type: 
  Country: None (occurrence: None)
  Receive Date: 20090218
  Receipt Date: 20090206
  Transmission Date: 20090719
  Serious: Yes (Hospitalization)
  Sender: FDA-Public Use
  Company Number: 2008001805

PATIENT
  Age: 64 Year
  Sex: Female
  Weight: 55 kg

DRUGS (4)
  1. ERLOTINIB         (ERLOTINIB) (TABLET) [Suspect]
     Indication: LUNG ADENOCARCINOMA
     Dosage: (150 MG, QD) ,ORAL
     Route: 048
     Dates: start: 20080328
  2. GASTER D [Concomitant]
  3. TOCOPHEROL CONCENTRATE CAP [Concomitant]
  4. LEVOFLOXACIN [Concomitant]

REACTIONS (7)
  - ANAEMIA [None]
  - DISEASE PROGRESSION [None]
  - GASTRITIS [None]
  - HAEMORRHAGE [None]
  - HAEMOTHORAX [None]
  - RASH [None]
  - URINARY TRACT INFECTION [None]
